FAERS Safety Report 9954112 (Version 1)
Quarter: 2014Q1

REPORT INFORMATION
  Report Type: Report from Study
  Country: US (occurrence: US)
  Receive Date: 20140304
  Receipt Date: 20140304
  Transmission Date: 20141002
  Serious: No
  Sender: FDA-Public Use
  Company Number: US-ABBVIE-13P-163-1077900-00

PATIENT
  Age: 51 Year
  Sex: Male
  Weight: 167.98 kg

DRUGS (4)
  1. HUMIRA [Suspect]
     Indication: PSORIATIC ARTHROPATHY
     Route: 058
     Dates: start: 201302
  2. LISINOPRIL [Concomitant]
     Indication: HYPERTENSION
  3. ALLOPURINOL [Concomitant]
     Indication: GOUT
  4. ASPIRIN [Concomitant]
     Indication: PROPHYLAXIS

REACTIONS (2)
  - Nasopharyngitis [Not Recovered/Not Resolved]
  - Nasopharyngitis [Not Recovered/Not Resolved]
